FAERS Safety Report 4931359-4 (Version None)
Quarter: 2006Q1

REPORT INFORMATION
  Report Type: 
  Country: None (occurrence: None)
  Receive Date: 20060228
  Receipt Date: 20060216
  Transmission Date: 20060701
  Serious: Yes (Other)
  Sender: FDA-Public Use
  Company Number: 222234

PATIENT
  Age: 80 Year
  Sex: Male

DRUGS (1)
  1. RITUXAN [Suspect]
     Indication: LYMPHOMA

REACTIONS (2)
  - AGRANULOCYTOSIS [None]
  - FALL [None]
